FAERS Safety Report 8422001-9 (Version None)
Quarter: 2012Q2

REPORT INFORMATION
  Report Type: 
  Country: None (occurrence: None)
  Receive Date: 20120608
  Receipt Date: 20120531
  Transmission Date: 20120825
  Serious: Yes (Hospitalization)
  Sender: FDA-Public Use
  Company Number: US-US-EMD SERONO, INC.-7112315

PATIENT
  Sex: Male
  Weight: 73 kg

DRUGS (8)
  1. PROVIGIL [Concomitant]
     Indication: FATIGUE
  2. CYMBALTA [Concomitant]
     Indication: DEPRESSION
  3. LEVOTHYROXINE SODIUM [Concomitant]
     Indication: THYROID DISORDER
  4. TIZANIDINE [Concomitant]
     Indication: MUSCLE SPASTICITY
  5. AMPYRA [Suspect]
     Indication: MULTIPLE SCLEROSIS
     Dates: end: 20120101
  6. REBIF [Suspect]
     Indication: MULTIPLE SCLEROSIS
     Route: 058
     Dates: start: 20050324
  7. BACLOFEN [Concomitant]
     Indication: MUSCLE SPASTICITY
  8. FLOMAX [Concomitant]
     Indication: PRODUCT USED FOR UNKNOWN INDICATION

REACTIONS (3)
  - HYPERSOMNIA [None]
  - CONJUNCTIVITIS INFECTIVE [None]
  - CONVULSION [None]
